FAERS Safety Report 5454552-3 (Version None)
Quarter: 2007Q3

REPORT INFORMATION
  Report Type: 
  Country: None (occurrence: None)
  Receive Date: 20070917
  Receipt Date: 20060831
  Transmission Date: 20080115
  Serious: Yes (Other)
  Sender: FDA-Public Use
  Company Number: US-ASTRAZENECA-2006UW17270

PATIENT
  Age: 86 Year
  Sex: Female
  Weight: 68 kg

DRUGS (9)
  1. SEROQUEL [Suspect]
     Indication: DEMENTIA ALZHEIMER'S TYPE
     Route: 048
  2. ARICEPT [Concomitant]
  3. NAMANA [Concomitant]
  4. PLAVIX [Concomitant]
  5. GLUCOTROL [Concomitant]
  6. ANTIHYPERTENSIVE [Concomitant]
  7. TOPROL-XL [Concomitant]
     Route: 048
  8. DIURETIC [Concomitant]
  9. VYTORIN [Concomitant]

REACTIONS (2)
  - CATATONIA [None]
  - SEDATION [None]
